FAERS Safety Report 23594373 (Version 2)
Quarter: 2024Q1

REPORT INFORMATION
  Report Type: Report from Study
  Country: US (occurrence: US)
  Receive Date: 20240305
  Receipt Date: 20240326
  Transmission Date: 20240410
  Serious: No
  Sender: FDA-Public Use
  Company Number: US-BoehringerIngelheim-2024-BI-011112

PATIENT
  Age: 74 Year
  Sex: Male

DRUGS (5)
  1. OFEV [Suspect]
     Active Substance: NINTEDANIB
     Indication: Idiopathic pulmonary fibrosis
     Dosage: TAKE 150MG BID 12HRS APART
     Route: 048
     Dates: start: 202402
  2. TUMS [Concomitant]
     Active Substance: CALCIUM CARBONATE
     Route: 048
  3. PRILOSEC [Concomitant]
     Active Substance: OMEPRAZOLE MAGNESIUM
     Route: 048
  4. TUMS [Concomitant]
     Active Substance: CALCIUM CARBONATE
     Route: 048
  5. PRILOSEC [Concomitant]
     Active Substance: OMEPRAZOLE MAGNESIUM
     Route: 048

REACTIONS (12)
  - Constipation [Not Recovered/Not Resolved]
  - Dry mouth [Recovered/Resolved]
  - Dyspnoea [Not Recovered/Not Resolved]
  - Dyspepsia [Not Recovered/Not Resolved]
  - Abdominal pain upper [Recovered/Resolved]
  - Epistaxis [Not Recovered/Not Resolved]
  - Impaired healing [Not Recovered/Not Resolved]
  - Diarrhoea [Recovered/Resolved]
  - Nocturia [Recovered/Resolved]
  - Blood glucose decreased [Recovered/Resolved]
  - Weight decreased [Recovered/Resolved]
  - Cough [Not Recovered/Not Resolved]

NARRATIVE: CASE EVENT DATE: 20240201
